FAERS Safety Report 19566998 (Version 1)
Quarter: 2021Q3

REPORT INFORMATION
  Report Type: Spontaneous
  Country: DE (occurrence: DE)
  Receive Date: 20210715
  Receipt Date: 20210715
  Transmission Date: 20211014
  Serious: Yes (Hospitalization, Other)
  Sender: FDA-Public Use
  Company Number: DE-ASTRAZENECA-2021A605504

PATIENT
  Age: 61 Year
  Sex: Male

DRUGS (2)
  1. FORMOTEROL FUMARATE/BUDESONIDE [Suspect]
     Active Substance: BUDESONIDE\FORMOTEROL FUMARATE
     Dosage: 320 / 9, TWO TIMES A DAY
     Route: 055
  2. LABA [Concomitant]

REACTIONS (1)
  - Chronic obstructive pulmonary disease [Unknown]
